FAERS Safety Report 9169089 (Version 1)
Quarter: 2013Q1

REPORT INFORMATION
  Report Type: Spontaneous
  Country: US (occurrence: US)
  Receive Date: 20130318
  Receipt Date: 20130318
  Transmission Date: 20140127
  Serious: Yes (Hospitalization)
  Sender: FDA-Public Use
  Company Number: US-GLAXOSMITHKLINE-A1015492A

PATIENT
  Age: 46 Year
  Sex: Female

DRUGS (4)
  1. SORIATANE [Suspect]
     Indication: PSORIASIS
  2. TRIAMCINOLONE CREAM [Concomitant]
  3. SYNTHROID [Concomitant]
  4. ETHANOL [Concomitant]

REACTIONS (3)
  - Rash [Recovered/Resolved]
  - Dyspnoea [Recovered/Resolved]
  - Chest pain [Recovered/Resolved]
